FAERS Safety Report 5340356-9 (Version None)
Quarter: 2007Q2

REPORT INFORMATION
  Report Type: 
  Country: None (occurrence: None)
  Receive Date: 20070531
  Receipt Date: 20070528
  Transmission Date: 20071010
  Serious: Yes (Hospitalization)
  Sender: FDA-Public Use
  Company Number: FR-ASTRAZENECA-2007CG00826

PATIENT
  Age: 29884 Day
  Sex: Female

DRUGS (8)
  1. NEXIUM [Suspect]
     Indication: HIATUS HERNIA
     Route: 048
  2. CORDARONE [Suspect]
     Dosage: ONE DF DAILY SIX DAYS PER WEEK
     Route: 048
  3. LEVOTHYROXINE SODIUM [Suspect]
     Indication: HYPOTHYROIDISM
     Route: 048
     Dates: start: 20070201
  4. LASIX [Concomitant]
     Dates: end: 20070406
  5. KAYEXALATE [Concomitant]
     Dates: end: 20070406
  6. SPECIAFOLDINE [Concomitant]
     Dates: end: 20070406
  7. ALUMINUM HYDROXIDE AND MAGNESIUM TRISILICATE [Concomitant]
     Dates: end: 20070406
  8. VERCYTE [Concomitant]
     Dates: end: 20070406

REACTIONS (1)
  - HYPOCALCAEMIA [None]
